FAERS Safety Report 6000118-6 (Version None)
Quarter: 2008Q4

REPORT INFORMATION
  Report Type: 
  Country: None (occurrence: None)
  Receive Date: 20081211
  Receipt Date: 20081211
  Transmission Date: 20090506
  Serious: Yes (Other)
  Sender: FDA-Public Use
  Company Number: None

PATIENT
  Age: 37 Year
  Sex: Female
  Weight: 68.0396 kg

DRUGS (1)
  1. BUPROPION HCL [Suspect]
     Indication: DEPRESSION
     Dosage: 1 1 X DAILY PO
     Route: 048
     Dates: start: 20081117, end: 20081201

REACTIONS (4)
  - PRURITUS GENERALISED [None]
  - RASH [None]
  - THROAT TIGHTNESS [None]
  - URTICARIA [None]
